FAERS Safety Report 10105181 (Version 1)
Quarter: 2014Q2

REPORT INFORMATION
  Report Type: Spontaneous
  Country: US (occurrence: US)
  Receive Date: 20140424
  Receipt Date: 20140424
  Transmission Date: 20141212
  Serious: No
  Sender: FDA-Public Use
  Company Number: US-B.I. PHARMACEUTICALS,INC./RIDGEFIELD-2014-BI-17542BP

PATIENT
  Age: 64 Year
  Sex: Male
  Weight: 125 kg

DRUGS (6)
  1. SPIRIVA [Suspect]
     Indication: ASTHMA
     Dosage: 18 MCG
     Route: 055
     Dates: start: 20140410
  2. DIABETIC TUSSIN DM [Concomitant]
     Indication: COUGH
     Dosage: (ORAL SUSPENSION)
     Route: 048
  3. XOPENEX NEBULIZER [Concomitant]
     Indication: ASTHMA
     Dosage: (INHALATION SOLUTION)
     Route: 055
  4. NOVOLOG INSULIN [Concomitant]
     Indication: DIABETES MELLITUS
     Dosage: FORMULATION: (SUBCUTANEOUS)
     Route: 058
  5. LANTUS INSULIN [Concomitant]
     Indication: DIABETES MELLITUS
     Dosage: (SUBCUTANEOUS)
     Route: 058
  6. VITAMIN D 3 [Concomitant]
     Route: 048

REACTIONS (4)
  - Cough [Not Recovered/Not Resolved]
  - Dysphonia [Not Recovered/Not Resolved]
  - Overdose [Recovered/Resolved]
  - Off label use [Not Recovered/Not Resolved]
